FAERS Safety Report 10767272 (Version 1)
Quarter: 2015Q1

REPORT INFORMATION
  Report Type: Spontaneous
  Country: US (occurrence: US)
  Receive Date: 20150205
  Receipt Date: 20150205
  Transmission Date: 20150721
  Serious: No
  Sender: FDA-Public Use
  Company Number: US-GALDERMA-US14003088

PATIENT
  Age: 23 Year
  Sex: Female

DRUGS (4)
  1. EPIDUO [Suspect]
     Active Substance: ADAPALENE\BENZOYL PEROXIDE
     Indication: ACNE
     Dosage: 0.1%/2.5%
     Route: 061
     Dates: start: 20140731, end: 20140814
  2. NEUTROGENA MAKE UP [Concomitant]
     Route: 061
  3. ANTIBACTERIAL SOAP [Concomitant]
     Active Substance: CHLOROXYLENOL
     Indication: ACNE
     Route: 061
  4. ERYGEL [Suspect]
     Active Substance: ERYTHROMYCIN
     Indication: ACNE
     Dosage: 2%
     Route: 061
     Dates: start: 20140731, end: 20140814

REACTIONS (1)
  - Drug ineffective [Not Recovered/Not Resolved]

NARRATIVE: CASE EVENT DATE: 201407
